FAERS Safety Report 8925377 (Version 1)
Quarter: 2012Q4

REPORT INFORMATION
  Report Type: 
  Country: DE (occurrence: DE)
  Receive Date: 20121126
  Receipt Date: 20121126
  Transmission Date: 20130627
  Serious: Yes (Hospitalization)
  Sender: FDA-Public Use
  Company Number: DE-PFIZER INC-2012292685

PATIENT
  Age: 61 Year
  Sex: Male
  Weight: 99 kg

DRUGS (9)
  1. GENOTROPIN [Suspect]
     Dosage: 0.5 mg, 1x/day, 7 injections/week
     Route: 058
     Dates: start: 20030311
  2. MEDIVITAN N INJECTION [Concomitant]
     Indication: FACIAL NERVE DISORDER
     Dosage: UNK
  3. TESTOSTERONE [Concomitant]
     Indication: LUTEINIZING HORMONE DEFICIENCY
     Dosage: UNK
     Dates: start: 19880915
  4. TESTOSTERONE [Concomitant]
     Indication: FOLLICLE-STIMULATING HORMONE DEFICIENCY
  5. TESTOSTERONE [Concomitant]
     Indication: TESTICULAR HYPOGONADISM
  6. SOBELIN [Concomitant]
     Indication: JAW DISORDER
     Dosage: UNK
     Dates: start: 19961024
  7. TIMONIL [Concomitant]
     Indication: FACIAL NERVE DISORDER
     Dosage: UNK
     Dates: start: 19970501
  8. L-THYROXIN [Concomitant]
     Indication: UNSPECIFIED HYPOTHYROIDISM
     Dosage: UNK
     Dates: start: 19880915
  9. HYDROCORTISONE [Concomitant]
     Indication: ACTH DECREASED
     Dosage: UNK
     Dates: start: 19880915

REACTIONS (1)
  - Arthropathy [Unknown]
